FAERS Safety Report 19154364 (Version 1)
Quarter: 2021Q2

REPORT INFORMATION
  Report Type: Report from Study
  Country: US (occurrence: US)
  Receive Date: 20210419
  Receipt Date: 20210419
  Transmission Date: 20210717
  Serious: Yes (Other)
  Sender: FDA-Public Use
  Company Number: NVSC2021US083214

PATIENT
  Sex: Female

DRUGS (1)
  1. MAYZENT [Suspect]
     Active Substance: SIPONIMOD
     Indication: MULTIPLE SCLEROSIS
     Dosage: 2 MG, QD
     Route: 048

REACTIONS (5)
  - Pain in extremity [Recovering/Resolving]
  - Groin pain [Recovering/Resolving]
  - Limb discomfort [Unknown]
  - Drug ineffective [Unknown]
  - Multiple sclerosis relapse [Unknown]
